FAERS Safety Report 8227868-5 (Version None)
Quarter: 2012Q1

REPORT INFORMATION
  Report Type: 
  Country: None (occurrence: None)
  Receive Date: 20120322
  Receipt Date: 20120319
  Transmission Date: 20120608
  Serious: Yes (Hospitalization, Other)
  Sender: FDA-Public Use
  Company Number: US-BAYER-201024992NA

PATIENT
  Age: 34 Year
  Sex: Female
  Weight: 68 kg

DRUGS (7)
  1. YASMIN [Suspect]
     Indication: ACNE
     Dosage: UNK
     Route: 048
     Dates: start: 20031011, end: 20031211
  2. AMITRIPTYLINE HCL [Concomitant]
  3. YASMIN [Suspect]
     Indication: PREMENSTRUAL SYNDROME
     Dosage: UNK
     Route: 048
     Dates: start: 20020101, end: 20031201
  4. ELAVIL [Concomitant]
     Route: 048
  5. AMOXICILLIN [Concomitant]
     Dosage: 875 MG, UNK
     Route: 048
  6. YASMIN [Suspect]
     Indication: CONTRACEPTION
     Dosage: UNK
     Dates: start: 20031003, end: 20031124
  7. CHERATUSSIN AC [Concomitant]

REACTIONS (9)
  - BACK PAIN [None]
  - CHILLS [None]
  - CHEST PAIN [None]
  - PYREXIA [None]
  - PULMONARY EMBOLISM [None]
  - COUGH [None]
  - SPUTUM ABNORMAL [None]
  - DYSPNOEA [None]
  - PAIN IN EXTREMITY [None]
